FAERS Safety Report 5455911-5 (Version None)
Quarter: 2007Q3

REPORT INFORMATION
  Report Type: 
  Country: None (occurrence: None)
  Receive Date: 20070918
  Receipt Date: 20070228
  Transmission Date: 20080115
  Serious: Yes (Other)
  Sender: FDA-Public Use
  Company Number: US-ASTRAZENECA-2006UW24165

PATIENT
  Age: 35 Year
  Sex: Female
  Weight: 68.2 kg

DRUGS (5)
  1. SEROQUEL [Suspect]
     Indication: MENTAL DISORDER
     Route: 048
     Dates: start: 19970101, end: 19990101
  2. RISPERDAL [Suspect]
  3. ZYPREXA [Suspect]
  4. HALDOL [Concomitant]
  5. THORAZINE [Concomitant]

REACTIONS (5)
  - BLADDER DISORDER [None]
  - BLOOD CHOLESTEROL INCREASED [None]
  - BLOOD TRIGLYCERIDES INCREASED [None]
  - INTERVERTEBRAL DISC DEGENERATION [None]
  - PANCREATITIS [None]
